FAERS Safety Report 7009916-3 (Version None)
Quarter: 2010Q3

REPORT INFORMATION
  Report Type: 
  Country: None (occurrence: None)
  Receive Date: 20100921
  Receipt Date: 20100913
  Transmission Date: 20110219
  Serious: Yes (Death, Hospitalization, Other)
  Sender: FDA-Public Use
  Company Number: 2010US003713

PATIENT
  Age: 57 Year
  Sex: Male

DRUGS (4)
  1. PROGRAF [Suspect]
     Indication: RENAL TRANSPLANT
     Dosage: 1 MG, BID
  2. PREDNISONE [Suspect]
     Indication: RENAL TRANSPLANT
     Dosage: 5 MG, UID/QD
  3. MYCOPHENOLATE MOFETIL [Suspect]
     Indication: RENAL TRANSPLANT
     Dosage: 1 G, BID
  4. 03-OKT (MUROMONAB-CD3) [Suspect]
     Indication: PANCREAS TRANSPLANT

REACTIONS (18)
  - ABDOMINAL PAIN [None]
  - BACK PAIN [None]
  - CARDIAC MURMUR [None]
  - DECREASED APPETITE [None]
  - EPSTEIN-BARR VIRUS ASSOCIATED LYMPHOPROLIFERATIVE DISORDER [None]
  - HEPATOSPLENOMEGALY [None]
  - HYPERCALCAEMIA [None]
  - MULTIPLE MYELOMA [None]
  - NIGHT SWEATS [None]
  - PANCREAS TRANSPLANT REJECTION [None]
  - PLASMACYTOMA [None]
  - PRODUCTIVE COUGH [None]
  - PYREXIA [None]
  - RENAL FAILURE [None]
  - RESPIRATORY FAILURE [None]
  - SCIATICA [None]
  - TACHYCARDIA [None]
  - WEIGHT DECREASED [None]
